FAERS Safety Report 10163728 (Version 1)
Quarter: 2014Q2

REPORT INFORMATION
  Report Type: Spontaneous
  Country: FR (occurrence: FR)
  Receive Date: 20140509
  Receipt Date: 20140509
  Transmission Date: 20141212
  Serious: Yes (Other)
  Sender: FDA-Public Use
  Company Number: FR-ABBVIE-14P-056-1235977-00

PATIENT
  Age: 48 Year
  Sex: Female

DRUGS (7)
  1. LIPANTHYL [Suspect]
     Indication: HYPERCHOLESTEROLAEMIA
     Route: 048
  2. EZETROL [Suspect]
     Indication: PRODUCT USED FOR UNKNOWN INDICATION
     Route: 048
     Dates: start: 2014, end: 20140327
  3. PARIET [Suspect]
     Indication: PRODUCT USED FOR UNKNOWN INDICATION
     Route: 048
     Dates: end: 20140327
  4. SIMVASTATINE [Suspect]
     Indication: HYPERCHOLESTEROLAEMIA
     Route: 048
  5. QUESTRAN [Suspect]
     Indication: HYPERCHOLESTEROLAEMIA
     Route: 048
  6. LIPANOR [Suspect]
     Indication: HYPERCHOLESTEROLAEMIA
     Route: 048
  7. NIASPAN [Suspect]
     Indication: HYPERCHOLESTEROLAEMIA
     Route: 048

REACTIONS (1)
  - Dermatomyositis [Not Recovered/Not Resolved]
